FAERS Safety Report 17356422 (Version 3)
Quarter: 2020Q2

REPORT INFORMATION
  Report Type: Spontaneous
  Country: BE (occurrence: BE)
  Receive Date: 20200131
  Receipt Date: 20200622
  Transmission Date: 20200713
  Serious: Yes (Hospitalization, Other)
  Sender: FDA-Public Use
  Company Number: NVSC2019BE086767

PATIENT
  Age: 70 Year
  Sex: Male
  Weight: 68 kg

DRUGS (16)
  1. 5-FU [Suspect]
     Active Substance: FLUOROURACIL
     Indication: PRODUCT USED FOR UNKNOWN INDICATION
     Dosage: 2 DF, QW
     Route: 042
     Dates: start: 20170508
  2. LEUCOVORIN. [Suspect]
     Active Substance: LEUCOVORIN
     Indication: COLORECTAL CANCER METASTATIC
     Dosage: 2 DF, QW
     Route: 042
     Dates: start: 20170508
  3. DECAPEPTYL [Concomitant]
     Indication: PRODUCT USED FOR UNKNOWN INDICATION
     Route: 065
  4. SIMVASTATINE [Concomitant]
     Active Substance: SIMVASTATIN
     Indication: PRODUCT USED FOR UNKNOWN INDICATION
     Dosage: UNK
     Route: 065
  5. TRIPTORELIN [Concomitant]
     Active Substance: TRIPTORELIN
     Indication: PRODUCT USED FOR UNKNOWN INDICATION
     Dosage: UNK
     Route: 065
  6. CETUXIMAB. [Concomitant]
     Active Substance: CETUXIMAB
     Indication: PRODUCT USED FOR UNKNOWN INDICATION
     Dosage: UNK
     Route: 065
     Dates: start: 20171227
  7. MAGNESIUM SULFATE. [Concomitant]
     Active Substance: MAGNESIUM SULFATE
     Indication: PROPHYLAXIS
     Route: 065
     Dates: start: 20171227
  8. BEVACIZUMAB. [Suspect]
     Active Substance: BEVACIZUMAB
     Indication: COLORECTAL CANCER METASTATIC
     Dosage: 2 DF, QW
     Route: 042
     Dates: start: 20170508, end: 20171204
  9. LEUCOVORIN. [Suspect]
     Active Substance: LEUCOVORIN
     Dosage: 2 DF, QW
     Route: 042
     Dates: start: 20171204
  10. OXALIPLATIN. [Suspect]
     Active Substance: OXALIPLATIN
     Dosage: 2 DF, QW
     Route: 042
     Dates: start: 20171204
  11. OXALIPLATIN. [Suspect]
     Active Substance: OXALIPLATIN
     Indication: COLORECTAL CANCER METASTATIC
     Dosage: 2 DF, QW
     Route: 042
     Dates: start: 20170508
  12. AMLOR [Concomitant]
     Active Substance: AMLODIPINE BESYLATE
     Indication: PRODUCT USED FOR UNKNOWN INDICATION
     Route: 065
  13. EUSAPRIM [Concomitant]
     Active Substance: SULFAMETHOXAZOLE\TRIMETHOPRIM
     Indication: PRODUCT USED FOR UNKNOWN INDICATION
     Dosage: UNK
     Route: 065
     Dates: start: 201710, end: 201710
  14. URFADYN [Concomitant]
     Active Substance: NIFURTOINOL
     Indication: PRODUCT USED FOR UNKNOWN INDICATION
     Dosage: UNK
     Route: 065
  15. 5-FU [Suspect]
     Active Substance: FLUOROURACIL
     Dosage: 2 DF, QW
     Route: 042
     Dates: start: 20171204
  16. PANTOMED [Concomitant]
     Indication: PRODUCT USED FOR UNKNOWN INDICATION
     Dosage: UNK
     Route: 065
     Dates: start: 20170706

REACTIONS (16)
  - Fatigue [Recovered/Resolved]
  - Agitation [Recovered/Resolved]
  - Pain in extremity [Recovered/Resolved]
  - Urinary tract infection [Recovered/Resolved]
  - Vomiting [Recovered/Resolved]
  - Constipation [Recovered/Resolved]
  - Cataract [Recovered/Resolved]
  - Diarrhoea [Recovered/Resolved]
  - Nausea [Recovered/Resolved]
  - Back pain [Recovered/Resolved]
  - Pyrexia [Recovered/Resolved]
  - Neuropathy peripheral [Recovered/Resolved]
  - Presyncope [Recovered/Resolved]
  - Back pain [Recovered/Resolved]
  - Groin pain [Recovered/Resolved]
  - Decreased appetite [Recovering/Resolving]

NARRATIVE: CASE EVENT DATE: 20170529
